FAERS Safety Report 6663594-1 (Version None)
Quarter: 2010Q2

REPORT INFORMATION
  Report Type: 
  Country: None (occurrence: None)
  Receive Date: 20100401
  Receipt Date: 20100326
  Transmission Date: 20101027
  Serious: Yes (Death)
  Sender: FDA-Public Use
  Company Number: US-ROCHE-682470

PATIENT
  Sex: Male

DRUGS (1)
  1. XELODA [Suspect]
     Dosage: 2 WEEKS ON, 1 WEEK OFF, DOSE 4 X 500 MG; OTHER INDICATION: HEPATOCELLULAR CARCINOMA
     Route: 048
     Dates: start: 20090201

REACTIONS (1)
  - MALIGNANT NEOPLASM PROGRESSION [None]
